FAERS Safety Report 12436966 (Version 2)
Quarter: 2016Q2

REPORT INFORMATION
  Report Type: Spontaneous
  Country: JP (occurrence: JP)
  Receive Date: 20160606
  Receipt Date: 20160606
  Transmission Date: 20160815
  Serious: Yes (Death, Hospitalization)
  Sender: FDA-Public Use
  Company Number: JP-CIPLA LTD.-2016JP06071

PATIENT

DRUGS (1)
  1. LEVOFLOXACIN. [Suspect]
     Active Substance: LEVOFLOXACIN
     Indication: KLEBSIELLA INFECTION
     Dosage: UNK
     Route: 042

REACTIONS (2)
  - Hypotension [Unknown]
  - Klebsiella infection [Fatal]
